FAERS Safety Report 4701525-1 (Version None)
Quarter: 2005Q2

REPORT INFORMATION
  Report Type: 
  Country: None (occurrence: None)
  Receive Date: 20050627
  Receipt Date: 20050530
  Transmission Date: 20051028
  Serious: Yes (Hospitalization)
  Sender: FDA-Public Use
  Company Number: 6015163

PATIENT
  Age: 54 Year
  Sex: Female

DRUGS (11)
  1. GLUCOPHAGE [Suspect]
     Indication: DIABETES MELLITUS
     Dosage: 3000 MG ORAL
     Route: 048
  2. PRAXILENE                                               (NAFTIDROFURYL [Suspect]
     Dosage: 600 MG (600 MG) ORAL
     Route: 048
  3. PIROXICAM [Suspect]
     Indication: RHEUMATOID ARTHRITIS
     Dosage: 20 MG (20 MG, 1 IN 1 D), ORAL
     Route: 048
     Dates: start: 20050210
  4. DI-ANTALVIC            (PARACETAMOL, DEXTROPROPOXYPHENE HCL) [Suspect]
     Indication: RHEUMATOID ARTHRITIS
     Dosage: 6 DOSAGE FORMS (6 DOSAGE FORMS, 1 D), ORAL
     Route: 048
     Dates: start: 20050210
  5. DIAMICRON (GLICLAZIDE) [Suspect]
     Indication: DIABETES MELLITUS
     Dosage: 120 MG (30 MG, 4 IN 1 D), ORAL
     Route: 048
     Dates: start: 20050210
  6. NEXIUM [Suspect]
     Dosage: 1 DOSAGE FORMS (1 DOSAGE FORMS, 1 IN 1 D) ORAL
     Route: 048
     Dates: start: 20050210
  7. CORTANCYL  (PREDNISONE) [Suspect]
     Dosage: 10 MG (10 MG, 1 D), ORAL
     Route: 048
     Dates: start: 20050210
  8. KARDEGIC                                               (ACETYLSALICYCL [Suspect]
     Dosage: 75 MG (75 MG, 1 D), ORAL
     Route: 048
     Dates: start: 20050210
  9. DAFLON                               (DIOSMIN) [Suspect]
     Dosage: 1000 MG (500 MG, 2 IN 1 D), ORAL
     Route: 048
     Dates: start: 20050210
  10. NISIS                            (VALSARTAN) [Suspect]
     Dosage: 1 DOSAGE FORMS (1 DOSAGE FORMS, 1 D), ORAL
     Route: 048
     Dates: start: 20050210
  11. FERROUS SULFATE TAB [Suspect]
     Dosage: 1 DOSAGE FORMS (1 DOSAGE FORMS, 1 D), ORAL
     Route: 048
     Dates: start: 20050210

REACTIONS (1)
  - PANCYTOPENIA [None]
